FAERS Safety Report 8160855-4 (Version None)
Quarter: 2012Q1

REPORT INFORMATION
  Report Type: 
  Country: None (occurrence: None)
  Receive Date: 20120223
  Receipt Date: 20120220
  Transmission Date: 20120608
  Serious: Yes (Death, Hospitalization, Other)
  Sender: FDA-Public Use
  Company Number: PHFR2011GB006711

PATIENT
  Sex: Male
  Weight: 70 kg

DRUGS (17)
  1. QVAR 40 [Concomitant]
  2. IPRATROPIUM BROMIDE [Concomitant]
  3. CHLORHEXIDINE GLUCONATE [Concomitant]
  4. LIGHT LIQUID PARAFFIN [Concomitant]
  5. ATIMOS MODULITE [Concomitant]
     Dosage: UNK
  6. PREDNISOLONE [Concomitant]
     Dosage: 5 MG, UNK
  7. TIOTROPIUM [Concomitant]
     Dosage: UNK
  8. VENTOLIN [Concomitant]
  9. LANSOPRAZOLE [Concomitant]
  10. ONBREZ [Suspect]
     Indication: CHRONIC OBSTRUCTIVE PULMONARY DISEASE
     Dosage: 150 UG, UNK
     Dates: start: 20110525
  11. DITHRANOL [Concomitant]
  12. BETAMETHASONE VALERATE [Concomitant]
  13. ALBUTEROL SULFATE AUTOHALER [Concomitant]
  14. BETAMETHASONE W/CALCIPOTRIOL [Concomitant]
  15. BETNOVATE [Concomitant]
  16. RAMIPRIL [Concomitant]
     Dosage: 10 MG, UNK
  17. DERMOL SOL [Concomitant]

REACTIONS (12)
  - CHRONIC OBSTRUCTIVE PULMONARY DISEASE [None]
  - PULMONARY OEDEMA [None]
  - MYOCARDIAL FIBROSIS [None]
  - MYOCARDIAL ISCHAEMIA [None]
  - RASH MACULO-PAPULAR [None]
  - ADRENAL ATROPHY [None]
  - SKIN DISORDER [None]
  - INCREASED BRONCHIAL SECRETION [None]
  - PULMONARY CONGESTION [None]
  - EMPHYSEMA [None]
  - ARTERIOSCLEROSIS [None]
  - DILATATION VENTRICULAR [None]
